FAERS Safety Report 15708017 (Version 1)
Quarter: 2018Q4

REPORT INFORMATION
  Report Type: Spontaneous
  Country: US (occurrence: US)
  Receive Date: 20181211
  Receipt Date: 20181211
  Transmission Date: 20190205
  Serious: No
  Sender: FDA-Public Use
  Company Number: US-SHIRE-US201847757

PATIENT
  Sex: Female

DRUGS (1)
  1. NATPARA (PARATHYROID HORMONE) [Suspect]
     Active Substance: PARATHYROID HORMONE
     Indication: HORMONE THERAPY
     Dosage: 50 ?G, UNK
     Route: 065

REACTIONS (3)
  - Nausea [Unknown]
  - Frequent bowel movements [Unknown]
  - Unevaluable event [Unknown]
